FAERS Safety Report 13253370 (Version 1)
Quarter: 2017Q1

REPORT INFORMATION
  Report Type: Report from Study
  Country: None (occurrence: JP)
  Receive Date: 20170220
  Receipt Date: 20170220
  Transmission Date: 20170428
  Serious: Yes (Hospitalization)
  Sender: FDA-Public Use
  Company Number: JP-ABBVIE-17P-087-1879665-00

PATIENT
  Age: 35 Year
  Sex: Male
  Weight: 47.2 kg

DRUGS (13)
  1. DAIKENCHUTO [Concomitant]
     Active Substance: HERBALS
     Dates: start: 20160820
  2. ETHYL LOFLAZEPATE [Concomitant]
     Active Substance: ETHYL LOFLAZEPATE
     Indication: PRODUCT USED FOR UNKNOWN INDICATION
     Route: 048
     Dates: start: 20150612
  3. RAMOSETRON HCL [Concomitant]
     Indication: PRODUCT USED FOR UNKNOWN INDICATION
     Route: 048
     Dates: start: 20150808
  4. RAMELTEON [Concomitant]
     Active Substance: RAMELTEON
     Indication: PRODUCT USED FOR UNKNOWN INDICATION
     Route: 048
     Dates: start: 20160219
  5. HUMIRA [Suspect]
     Active Substance: ADALIMUMAB
     Route: 058
     Dates: start: 20160922
  6. MESALAZINE [Concomitant]
     Active Substance: MESALAMINE
     Indication: CROHN^S DISEASE
     Route: 048
  7. HOCHUEKKITO [Concomitant]
     Active Substance: HERBALS
     Indication: CROHN^S DISEASE
     Route: 048
     Dates: start: 20140328
  8. DAIKENCHUTO [Concomitant]
     Active Substance: HERBALS
     Indication: CROHN^S DISEASE
     Route: 048
     Dates: start: 20140509, end: 20160819
  9. SULPIRIDE [Concomitant]
     Active Substance: SULPIRIDE
     Indication: PRODUCT USED FOR UNKNOWN INDICATION
     Route: 048
     Dates: start: 20150710
  10. MOSAPRIDE CITRATE [Concomitant]
     Active Substance: MOSAPRIDE CITRATE
     Indication: CROHN^S DISEASE
     Route: 048
     Dates: start: 20140418, end: 20160819
  11. EXCELASE [Concomitant]
     Active Substance: PANCRELIPASE
     Indication: CROHN^S DISEASE
     Route: 048
     Dates: start: 20141110
  12. HUMIRA [Suspect]
     Active Substance: ADALIMUMAB
     Indication: CROHN^S DISEASE
     Route: 058
     Dates: start: 20131115, end: 20160901
  13. CLOSTRIDIUM BUTYRICUM [Concomitant]
     Active Substance: CLOSTRIDIUM BUTYRICUM SPORES STRAIN M-55
     Indication: CROHN^S DISEASE
     Route: 048
     Dates: start: 20140801

REACTIONS (2)
  - Upper respiratory tract infection [Recovered/Resolved]
  - Ileus [Recovered/Resolved]

NARRATIVE: CASE EVENT DATE: 20160520
